FAERS Safety Report 8092810-7 (Version None)
Quarter: 2012Q1

REPORT INFORMATION
  Report Type: 
  Country: None (occurrence: None)
  Receive Date: 20120128
  Receipt Date: 20110809
  Transmission Date: 20120608
  Serious: No
  Sender: FDA-Public Use
  Company Number: US-ABBOTT-11P-163-0846246-00

PATIENT
  Sex: Female
  Weight: 68.1 kg

DRUGS (8)
  1. COREG [Concomitant]
     Indication: ARRHYTHMIA
  2. HYDROCODONE BITARTRATE [Concomitant]
     Indication: PAIN
  3. HUMIRA [Suspect]
     Dates: start: 20110501
  4. HUMIRA [Suspect]
     Indication: RHEUMATOID ARTHRITIS
     Dates: start: 20040101, end: 20100901
  5. TOPROL-XL [Concomitant]
     Indication: HYPERTENSION
  6. NEXIUM [Concomitant]
     Indication: GASTROOESOPHAGEAL REFLUX DISEASE
  7. ALBUTEROL [Concomitant]
     Indication: ASTHMA
  8. FLONASE [Concomitant]
     Indication: HYPERSENSITIVITY

REACTIONS (2)
  - DRUG INEFFECTIVE [None]
  - RHEUMATOID ARTHRITIS [None]
